FAERS Safety Report 9520233 (Version 1)
Quarter: 2013Q3

REPORT INFORMATION
  Report Type: Spontaneous
  Country: CO (occurrence: CO)
  Receive Date: 20130912
  Receipt Date: 20130912
  Transmission Date: 20140515
  Serious: Yes (Disabling)
  Sender: FDA-Public Use
  Company Number: CO-UCBSA-097407

PATIENT
  Age: 54 Year
  Sex: Female

DRUGS (3)
  1. CERTOLIZUMAB PEGOL [Suspect]
     Indication: RHEUMATOID ARTHRITIS
     Route: 058
     Dates: start: 20120927, end: 20130706
  2. METHOTREXATE [Concomitant]
     Dosage: UNKNOWN DOSE
  3. ACETAMINOPHEN [Concomitant]
     Dosage: UNKNOWN DOSE

REACTIONS (2)
  - Uterine disorder [Unknown]
  - Viral infection [Unknown]
